FAERS Safety Report 15566367 (Version 5)
Quarter: 2019Q1

REPORT INFORMATION
  Report Type: Spontaneous
  Country: US (occurrence: US)
  Receive Date: 20181030
  Receipt Date: 20190102
  Transmission Date: 20190417
  Serious: No
  Sender: FDA-Public Use
  Company Number: US-BAYER-2018-200582

PATIENT
  Age: 43 Year

DRUGS (4)
  1. MIRENA [Suspect]
     Active Substance: LEVONORGESTREL
     Indication: CONTRACEPTION
  2. MIRENA [Suspect]
     Active Substance: LEVONORGESTREL
     Indication: POST PROCEDURAL HAEMORRHAGE
  3. MIRENA [Suspect]
     Active Substance: LEVONORGESTREL
     Indication: CONTRACEPTION
     Dosage: 20 MCG/24HR, CONT
     Route: 015
     Dates: start: 201809
  4. MIRENA [Suspect]
     Active Substance: LEVONORGESTREL
     Indication: POST PROCEDURAL HAEMORRHAGE

REACTIONS (6)
  - Abdominal distension [None]
  - Dizziness [Recovered/Resolved]
  - Procedural dizziness [Recovered/Resolved]
  - Vaginal haemorrhage [Recovered/Resolved]
  - Dizziness postural [Recovered/Resolved]
  - Headache [None]

NARRATIVE: CASE EVENT DATE: 201809
